FAERS Safety Report 16832167 (Version 1)
Quarter: 2019Q3

REPORT INFORMATION
  Report Type: Spontaneous
  Country: US (occurrence: US)
  Receive Date: 20190730
  Receipt Date: 20190730
  Transmission Date: 20191005
  Serious: No
  Sender: FDA-Public Use
  Company Number: None

PATIENT
  Age: 26 Year
  Sex: Female

DRUGS (1)
  1. HYDROXYPROG 250MG/ML  (1ML )SDV [Suspect]
     Active Substance: HYDROXYPROGESTERONE
     Dates: start: 201907

REACTIONS (2)
  - Product prescribing issue [None]
  - Product use issue [None]

NARRATIVE: CASE EVENT DATE: 20190730
